FAERS Safety Report 19736301 (Version 1)
Quarter: 2021Q3

REPORT INFORMATION
  Report Type: Spontaneous
  Country: US (occurrence: US)
  Receive Date: 20210823
  Receipt Date: 20210823
  Transmission Date: 20211014
  Serious: No
  Sender: FDA-Public Use
  Company Number: US-ELI_LILLY_AND_COMPANY-US202108009483

PATIENT
  Sex: Female

DRUGS (2)
  1. EMGALITY [Suspect]
     Active Substance: GALCANEZUMAB-GNLM
     Indication: MIGRAINE
     Dosage: 120 MG, UNKNOWN
     Route: 065
  2. COVID?19 VACCINE NOS. [Suspect]
     Active Substance: COVID-19 VACCINE NOS
     Indication: PRODUCT USED FOR UNKNOWN INDICATION
     Dosage: UNK UNK, UNKNOWN
     Route: 065

REACTIONS (10)
  - Neuralgia [Unknown]
  - Back disorder [Unknown]
  - Brain injury [Unknown]
  - Breast pain [Unknown]
  - Blood potassium decreased [Unknown]
  - Migraine [Unknown]
  - Fall [Unknown]
  - Hypervitaminosis [Unknown]
  - Autoimmune disorder [Unknown]
  - Pain [Unknown]
